FAERS Safety Report 9328101 (Version 1)
Quarter: 2013Q2

REPORT INFORMATION
  Report Type: Spontaneous
  Country: US (occurrence: US)
  Receive Date: 20130604
  Receipt Date: 20130604
  Transmission Date: 20140414
  Serious: No
  Sender: FDA-Public Use
  Company Number: US-SANOFI-AVENTIS-2012SA032423

PATIENT
  Age: 69 Year
  Sex: Female

DRUGS (3)
  1. SOLOSTAR [Suspect]
     Indication: DIABETES MELLITUS
     Dates: start: 2012
  2. LANTUS [Suspect]
     Indication: DIABETES MELLITUS
     Dosage: EVERY EVENING DOSE:19 UNIT(S)
     Route: 058
  3. NOVOLOG [Concomitant]

REACTIONS (4)
  - Dyspnoea [Unknown]
  - Product quality issue [Unknown]
  - Hyperhidrosis [Unknown]
  - Rash generalised [Unknown]
